FAERS Safety Report 4514731-6 (Version None)
Quarter: 2004Q4

REPORT INFORMATION
  Report Type: 
  Country: None (occurrence: None)
  Receive Date: 20041124
  Receipt Date: 20041124
  Transmission Date: 20050328
  Serious: Yes (Death, Hospitalization, Other)
  Sender: FDA-Public Use
  Company Number: None

PATIENT
  Age: 87 Year
  Sex: Female
  Weight: 49.8957 kg

DRUGS (1)
  1. LEVAQUIN [Suspect]
     Indication: CYSTITIS
     Dosage: 1 TAB  1X DAIILY ORAL
     Route: 048
     Dates: start: 20000206, end: 20000212

REACTIONS (3)
  - CLOSTRIDIUM COLITIS [None]
  - INTESTINAL OBSTRUCTION [None]
  - RENAL FAILURE [None]
